FAERS Safety Report 4377340-8 (Version None)
Quarter: 2004Q2

REPORT INFORMATION
  Report Type: 
  Country: None (occurrence: None)
  Receive Date: 20040609
  Receipt Date: 20040402
  Transmission Date: 20050107
  Serious: No
  Sender: FDA-Public Use
  Company Number: 2004208129US

PATIENT
  Age: 77 Year
  Sex: Female

DRUGS (19)
  1. BEXTRA [Suspect]
     Dosage: 10 MG
     Dates: start: 20040224
  2. LEVAQUIN [Suspect]
     Indication: SINUSITIS
     Dates: start: 20040330
  3. PRAVACHOL [Concomitant]
  4. FOSAMAX [Concomitant]
  5. ALLEGRA [Concomitant]
  6. FLONASE [Concomitant]
  7. ANTIVERT (MECLOZINE HYDROCHLORIDE) [Concomitant]
  8. CLOTRIMAZOLE [Concomitant]
  9. METRONIDAZOLE [Concomitant]
  10. DIPROLENE AF [Concomitant]
  11. HYDROXYZINE [Concomitant]
  12. GLUCOSAMINE W/CHONDROITIN SULFATES (MANGANESE) [Concomitant]
  13. CENTRUM SILVER (RETINOL, VITAMINS NOS, VITAMIN B NOS) [Concomitant]
  14. VITAMIN E [Concomitant]
  15. VITAMIN B-12 [Concomitant]
  16. GINKGO BILOBA (GINKGO BILOBA) [Concomitant]
  17. CALCIUM [Concomitant]
  18. ECHINACEA EXTRACT (ECHINACEA EXTRACT) [Concomitant]
  19. OMEGA 3 (FISH OIL) [Concomitant]

REACTIONS (5)
  - BACK PAIN [None]
  - DIZZINESS [None]
  - FEELING ABNORMAL [None]
  - URINARY INCONTINENCE [None]
  - VOMITING [None]
